FAERS Safety Report 5041896-2 (Version None)
Quarter: 2006Q2

REPORT INFORMATION
  Report Type: 
  Country: None (occurrence: None)
  Receive Date: 20060630
  Receipt Date: 20060619
  Transmission Date: 20061013
  Serious: Yes (Hospitalization)
  Sender: FDA-Public Use
  Company Number: L06-USA-02570-04

PATIENT
  Age: 27 Year
  Sex: Male

DRUGS (4)
  1. CARBAMAZEPINE [Suspect]
     Indication: GRAND MAL CONVULSION
  2. CARBAMAZEPINE [Suspect]
     Indication: SIMPLE PARTIAL SEIZURES
  3. VALPROIC ACID [Suspect]
     Indication: GRAND MAL CONVULSION
  4. VALPROIC ACID [Suspect]
     Indication: SIMPLE PARTIAL SEIZURES

REACTIONS (9)
  - ANTICONVULSANT DRUG LEVEL INCREASED [None]
  - CONDITION AGGRAVATED [None]
  - CONVULSION [None]
  - DRUG INEFFECTIVE [None]
  - DRUG INTERACTION [None]
  - DRUG TOXICITY [None]
  - GAIT DISTURBANCE [None]
  - LETHARGY [None]
  - STATUS EPILEPTICUS [None]
